FAERS Safety Report 8277923-9 (Version None)
Quarter: 2012Q2

REPORT INFORMATION
  Report Type: 
  Country: None (occurrence: None)
  Receive Date: 20120412
  Receipt Date: 20120402
  Transmission Date: 20120825
  Serious: Yes (Hospitalization, Other)
  Sender: FDA-Public Use
  Company Number: US-ELI_LILLY_AND_COMPANY-US201006002393

PATIENT
  Sex: Female

DRUGS (21)
  1. VITAMIN D [Concomitant]
     Dosage: 1000 MG, DAILY (1/D)
  2. FORTEO [Suspect]
     Indication: OSTEOPOROSIS
     Dosage: 20 UG, DAILY (1/D)
     Dates: start: 20100527, end: 20110603
  3. CALCIUM CARBONATE [Concomitant]
     Dosage: 600 MG, 3/D
  4. CHLORZOXAZONE [Concomitant]
     Dosage: 500 MG, BID
  5. FORTEO [Suspect]
     Dosage: 20 UG, QD
     Dates: start: 20110608
  6. MULTIVITAMIN [Concomitant]
     Dosage: UNK, DAILY (1/D)
  7. LISINOPRIL HCT /01613901/ [Concomitant]
     Dosage: 20 MG/12 MG, DAILY (1/D)
  8. TYLENOL (CAPLET) [Concomitant]
  9. NASACORT [Concomitant]
     Route: 055
  10. ADVAIR DISKUS 100/50 [Concomitant]
     Indication: ASTHMA
     Dosage: UNK, DAILY (1/D)
  11. FLONASE [Concomitant]
     Dosage: UNK, PRN
  12. FISH OIL [Concomitant]
     Dosage: UNK, QD
  13. MULTI-VITAMIN [Concomitant]
  14. FORTEO [Suspect]
     Dosage: 20 UG, QD
  15. PREMARIN [Concomitant]
     Dosage: 0.625 MG, DAILY (1/D)
  16. ASACOL [Concomitant]
     Dosage: 400 MG, 3/D
  17. IRON [Concomitant]
     Dosage: UNK, DAILY (1/D)
  18. PRILOSEC [Concomitant]
     Dosage: 20 MG, EACH MORNING
  19. B12-VITAMIN [Concomitant]
     Dosage: UNK, DAILY (1/D)
  20. METOPROLOL TARTRATE [Concomitant]
     Dosage: 100 MG, 2/D
  21. TYLENOL TAB [Concomitant]
     Dosage: UNK, AS NEEDED

REACTIONS (25)
  - DIARRHOEA [None]
  - BLOOD PRESSURE DECREASED [None]
  - FATIGUE [None]
  - HYPERHIDROSIS [None]
  - LIMB DISCOMFORT [None]
  - INSOMNIA [None]
  - MUSCLE SPASMS [None]
  - NECK PAIN [None]
  - FEELING COLD [None]
  - DECREASED APPETITE [None]
  - BLOOD PRESSURE INCREASED [None]
  - NUCHAL RIGIDITY [None]
  - FLATULENCE [None]
  - PERIPHERAL COLDNESS [None]
  - HERNIA HIATUS REPAIR [None]
  - BONE PAIN [None]
  - DYSPHAGIA [None]
  - TOOTH INFECTION [None]
  - CHILLS [None]
  - HEART RATE ABNORMAL [None]
  - ENDOTRACHEAL INTUBATION [None]
  - SURGERY [None]
  - VOMITING [None]
  - NAUSEA [None]
  - BACK PAIN [None]
